FAERS Safety Report 13544313 (Version 1)
Quarter: 2017Q2

REPORT INFORMATION
  Report Type: Spontaneous
  Country: US (occurrence: US)
  Receive Date: 20170515
  Receipt Date: 20170515
  Transmission Date: 20170830
  Serious: No
  Sender: FDA-Public Use
  Company Number: US-BAYER-2017-090921

PATIENT
  Age: 4 Year
  Sex: Female

DRUGS (2)
  1. CLARITIN [Suspect]
     Active Substance: LORATADINE
     Indication: VIRAL UPPER RESPIRATORY TRACT INFECTION
  2. CLARITIN [Suspect]
     Active Substance: LORATADINE
     Indication: HYPERSENSITIVITY
     Dosage: 1 TEASPOON IN THE AFTERNOON TEASPOON
     Route: 048
     Dates: end: 20170511

REACTIONS (6)
  - Insomnia [Recovered/Resolved]
  - Crying [Unknown]
  - Insomnia [Unknown]
  - Restlessness [Recovered/Resolved]
  - Restlessness [Unknown]
  - Crying [Recovered/Resolved]

NARRATIVE: CASE EVENT DATE: 20170511
